FAERS Safety Report 6955176-9 (Version None)
Quarter: 2010Q3

REPORT INFORMATION
  Report Type: 
  Country: None (occurrence: None)
  Receive Date: 20100830
  Receipt Date: 20100817
  Transmission Date: 20110219
  Serious: Yes (Other)
  Sender: FDA-Public Use
  Company Number: JP-ELI_LILLY_AND_COMPANY-JP201007001476

PATIENT
  Sex: Female
  Weight: 85.1 kg

DRUGS (11)
  1. ZYPREXA [Suspect]
     Indication: SCHIZOPHRENIA
     Dosage: 5 MG, DAILY (1/D)
     Route: 048
     Dates: start: 20041014, end: 20041104
  2. ZYPREXA [Suspect]
     Dosage: 10 MG, DAILY (1/D)
     Route: 048
     Dates: start: 20041105, end: 20061109
  3. ZYPREXA [Suspect]
     Dosage: 15 MG, DAILY (1/D)
     Route: 048
     Dates: start: 20061110, end: 20070521
  4. ZYPREXA [Suspect]
     Dosage: 10 MG, DAILY (1/D)
     Route: 048
     Dates: start: 20070522, end: 20071120
  5. ZYPREXA [Suspect]
     Dosage: 5 MG, DAILY (1/D)
     Route: 048
     Dates: start: 20071121, end: 20100512
  6. ZYPREXA [Suspect]
     Dosage: 2.5 MG, DAILY (1/D)
     Route: 050
     Dates: start: 20100513, end: 20100610
  7. DORAL [Concomitant]
     Dosage: 15 MG, DAILY (1/D)
     Route: 048
     Dates: start: 20050819
  8. RISPERDAL [Concomitant]
     Dosage: 3 MG, DAILY (1/D)
     Route: 048
     Dates: start: 20050527
  9. LEVOTOMIN [Concomitant]
     Dosage: 5 MG, DAILY (1/D)
     Route: 048
     Dates: start: 20100330
  10. HIRNAMIN [Concomitant]
     Dosage: 5 MG, DAILY (1/D)
     Route: 048
     Dates: start: 20040930, end: 20100329
  11. SILECE [Concomitant]
     Dosage: 2 MG, DAILY (1/D)
     Route: 048
     Dates: start: 20040930, end: 20080604

REACTIONS (5)
  - BASEDOW'S DISEASE [None]
  - HEPATIC STEATOSIS [None]
  - HYPERINSULINAEMIA [None]
  - HYPERPROLACTINAEMIA [None]
  - OBESITY [None]
